FAERS Safety Report 4541301-6 (Version None)
Quarter: 2004Q4

REPORT INFORMATION
  Report Type: 
  Country: None (occurrence: None)
  Receive Date: 20041228
  Receipt Date: 20041201
  Transmission Date: 20050328
  Serious: Yes (Other)
  Sender: FDA-Public Use
  Company Number: B0358759A

PATIENT
  Age: 27 Year
  Sex: Male

DRUGS (12)
  1. EPIVIR [Suspect]
     Dosage: 150 MG / TWICE PER DAY /
  2. RETROVIR [Suspect]
     Dosage: 150 MG / TWICE PER DAY /
  3. INDINAVIR SULFATE (FORMULATION UNKNOWN) (INDINAVIR SULFATE) [Suspect]
     Dosage: 800 MG / THREE TIMES PER DAY /
  4. STAVUDINE [Concomitant]
  5. NELFINAVIR MESYLATE [Concomitant]
  6. TRETINOIN [Concomitant]
  7. CYTARABINE [Concomitant]
  8. DAUNORUBICIN HCL [Concomitant]
  9. METHOTREXATE [Concomitant]
  10. MERCAPTOPURINE [Concomitant]
  11. IDARUBICIN [Concomitant]
  12. AMOXICILLIN TRIHYDRATE [Concomitant]

REACTIONS (16)
  - ACUTE MYELOID LEUKAEMIA [None]
  - DYSPNOEA EXERTIONAL [None]
  - EPISTAXIS [None]
  - FATIGUE [None]
  - HAEMATURIA [None]
  - HEPATIC FUNCTION ABNORMAL [None]
  - MARROW HYPERPLASIA [None]
  - MUCOSAL INFLAMMATION [None]
  - NEPHROLITHIASIS [None]
  - PALPITATIONS [None]
  - PANCYTOPENIA [None]
  - PHARYNGEAL ERYTHEMA [None]
  - PHARYNGOLARYNGEAL PAIN [None]
  - PYREXIA [None]
  - RHINITIS [None]
  - WEIGHT DECREASED [None]
